FAERS Safety Report 7626579-4 (Version None)
Quarter: 2011Q3

REPORT INFORMATION
  Report Type: 
  Country: None (occurrence: None)
  Receive Date: 20110721
  Receipt Date: 20110711
  Transmission Date: 20111222
  Serious: Yes (Life-Threatening, Hospitalization)
  Sender: FDA-Public Use
  Company Number: FR-GLAXOSMITHKLINE-B0732087A

PATIENT
  Sex: Male
  Weight: 7.5 kg

DRUGS (10)
  1. ATROPINE [Suspect]
     Indication: GENERAL ANAESTHESIA
     Route: 042
     Dates: start: 20110615
  2. ACETAMINOPHEN [Concomitant]
     Dates: start: 20110615
  3. PROPOFOL [Suspect]
     Indication: GENERAL ANAESTHESIA
     Route: 042
     Dates: start: 20110615
  4. SEVOFLURANE [Suspect]
     Indication: GENERAL ANAESTHESIA
     Route: 042
     Dates: start: 20110615
  5. NALBUPHINE [Suspect]
     Indication: PAIN
     Route: 042
     Dates: start: 20110615, end: 20110620
  6. UVESTEROL [Concomitant]
  7. MORPHINE [Concomitant]
     Dates: start: 20110616
  8. SUFENTA PRESERVATIVE FREE [Suspect]
     Indication: GENERAL ANAESTHESIA
     Route: 042
     Dates: start: 20110615
  9. ONDANSERTRON HYDROCHLORIDE [Suspect]
     Indication: NAUSEA
     Dosage: 2MG TWICE PER DAY
     Route: 042
     Dates: start: 20110616, end: 20110618
  10. CEFAMANDOLE SODIUM [Suspect]
     Indication: ANTIBIOTIC PROPHYLAXIS
     Route: 042
     Dates: start: 20110615

REACTIONS (6)
  - NEPHROTIC SYNDROME [None]
  - MALAISE [None]
  - RENAL TUBULAR DISORDER [None]
  - OXYGEN SATURATION DECREASED [None]
  - BRADYCARDIA [None]
  - CLONUS [None]
